FAERS Safety Report 4519300-X (Version None)
Quarter: 2004Q4

REPORT INFORMATION
  Report Type: 
  Country: None (occurrence: None)
  Receive Date: 20041206
  Receipt Date: 20041129
  Transmission Date: 20050328
  Serious: Yes (Other)
  Sender: FDA-Public Use
  Company Number: US-GLAXOSMITHKLINE-A0535398A

PATIENT
  Sex: Female

DRUGS (7)
  1. WELLBUTRIN [Suspect]
     Indication: DEPRESSION
     Dosage: 150MG TWICE PER DAY
     Route: 048
  2. THYROID TAB [Concomitant]
  3. METOPROLOL [Concomitant]
  4. DETROL LA [Concomitant]
  5. AVAPRO [Concomitant]
  6. PAXIL [Concomitant]
  7. PREMARIN [Concomitant]

REACTIONS (2)
  - HALLUCINATION [None]
  - MEDICATION ERROR [None]
